FAERS Safety Report 5604309-5 (Version None)
Quarter: 2008Q1

REPORT INFORMATION
  Report Type: 
  Country: None (occurrence: None)
  Receive Date: 20080128
  Receipt Date: 20080118
  Transmission Date: 20080703
  Serious: Yes (Death, Hospitalization)
  Sender: FDA-Public Use
  Company Number: A0694317A

PATIENT
  Age: 31 Year
  Sex: Female
  Weight: 73.3 kg

DRUGS (6)
  1. TOPOTECAN HYDROCHLORIDE [Suspect]
     Indication: OVARIAN CANCER RECURRENT
     Dosage: 4MGM2 CYCLIC
     Route: 042
     Dates: start: 20071009, end: 20071112
  2. BEVACIZUMAB [Suspect]
     Indication: OVARIAN CANCER RECURRENT
     Dosage: 10MGK SEE DOSAGE TEXT
     Route: 042
     Dates: start: 20071009, end: 20071112
  3. HYDROMORPHONE HCL [Concomitant]
     Dosage: .8MG AS REQUIRED
     Route: 042
  4. HYDROMORPHONE HCL [Concomitant]
     Route: 048
  5. HEPARIN [Concomitant]
     Dosage: 5000UNIT THREE TIMES PER DAY
  6. NICOTINE [Concomitant]
     Dosage: 21MG PER DAY

REACTIONS (7)
  - ABDOMINAL PAIN [None]
  - CONVULSION [None]
  - DISEASE PROGRESSION [None]
  - HYDRONEPHROSIS [None]
  - PAIN [None]
  - SEPSIS [None]
  - SMALL INTESTINAL OBSTRUCTION [None]
